FAERS Safety Report 6249594-4 (Version None)
Quarter: 2009Q2

REPORT INFORMATION
  Report Type: 
  Country: None (occurrence: None)
  Receive Date: 20090625
  Receipt Date: 20090625
  Transmission Date: 20091009
  Serious: Yes (Hospitalization)
  Sender: FDA-Public Use
  Company Number: None

PATIENT
  Age: 69 Year
  Sex: Female

DRUGS (2)
  1. STALEVO 100 [Suspect]
     Indication: PARKINSON'S DISEASE
     Dosage: STALEVO 100 THREE TIMES DAILY PO
     Route: 048
  2. ROPINIROLE [Suspect]
     Dosage: ROPINIROLE 4MG EVERY 6 HOURS PO
     Route: 049

REACTIONS (2)
  - PATHOLOGICAL GAMBLING [None]
  - RECTAL HAEMORRHAGE [None]
